FAERS Safety Report 22211253 (Version 1)
Quarter: 2023Q2

REPORT INFORMATION
  Report Type: Spontaneous
  Country: US (occurrence: US)
  Receive Date: 20230414
  Receipt Date: 20230414
  Transmission Date: 20230721
  Serious: Yes (Disabling, Other)
  Sender: FDA-Public Use
  Company Number: US-REGENERON PHARMACEUTICALS, INC.-2023-053286

PATIENT
  Sex: Female

DRUGS (2)
  1. EYLEA [Suspect]
     Active Substance: AFLIBERCEPT
     Indication: Neovascular age-related macular degeneration
     Dosage: UNK INTO RIGHT EYE, FORMULATION: PFS GERRESHEIMER
     Dates: end: 202302
  2. EYLEA [Suspect]
     Active Substance: AFLIBERCEPT
     Dosage: UNK INTO LEFT EYE, FORMULATION: PFS GERRESHEIMER
     Dates: end: 20230329

REACTIONS (2)
  - Blindness unilateral [Not Recovered/Not Resolved]
  - Endophthalmitis [Not Recovered/Not Resolved]

NARRATIVE: CASE EVENT DATE: 20230401
